FAERS Safety Report 5730031-0 (Version None)
Quarter: 2008Q2

REPORT INFORMATION
  Report Type: 
  Country: None (occurrence: None)
  Receive Date: 20080507
  Receipt Date: 20080429
  Transmission Date: 20081010
  Serious: No
  Sender: FDA-Public Use
  Company Number: US-JNJFOC-20080407817

PATIENT
  Sex: Female

DRUGS (6)
  1. INVEGA [Suspect]
     Indication: SCHIZOPHRENIA
     Route: 048
  2. RISPERDAL [Suspect]
     Indication: SCHIZOPHRENIA
     Route: 048
  3. PROZAC [Concomitant]
     Indication: DRUG USE FOR UNKNOWN INDICATION
  4. BENADRYL [Concomitant]
     Indication: DRUG USE FOR UNKNOWN INDICATION
  5. CLONOPIN [Concomitant]
     Indication: DRUG USE FOR UNKNOWN INDICATION
  6. ATIVAN [Concomitant]
     Indication: ANXIETY

REACTIONS (4)
  - CHEST PAIN [None]
  - HYPOAESTHESIA [None]
  - MUSCULOSKELETAL STIFFNESS [None]
  - NAUSEA [None]
